FAERS Safety Report 12013312 (Version 2)
Quarter: 2016Q1

REPORT INFORMATION
  Report Type: Report from Study
  Country: KR (occurrence: KR)
  Receive Date: 20160205
  Receipt Date: 20160224
  Transmission Date: 20160526
  Serious: Yes (Other)
  Sender: FDA-Public Use
  Company Number: KR-ASTRAZENECA-2016SE10440

PATIENT
  Age: 17071 Day
  Sex: Female

DRUGS (11)
  1. TICAGRELOR [Suspect]
     Active Substance: TICAGRELOR
     Indication: CARDIOVASCULAR EVENT PROPHYLAXIS
     Route: 048
     Dates: start: 20150714
  2. ACETAMINOPHEN. [Concomitant]
     Active Substance: ACETAMINOPHEN
     Dates: start: 20150727, end: 20150731
  3. NORTRIPTYLINE HYDROCHLORIDE. [Concomitant]
     Active Substance: NORTRIPTYLINE HYDROCHLORIDE
     Dates: start: 20150715, end: 20150731
  4. SUCRALFATE. [Concomitant]
     Active Substance: SUCRALFATE
     Dates: start: 20150715, end: 20150731
  5. ACECLOFENAC [Concomitant]
     Active Substance: ACECLOFENAC
     Dates: start: 20150727, end: 20150731
  6. ATORVASTATIN CALCIUM. [Concomitant]
     Active Substance: ATORVASTATIN CALCIUM
     Dates: start: 20150713, end: 20150731
  7. CLOPIDOGREL BISULFATE. [Concomitant]
     Active Substance: CLOPIDOGREL BISULFATE
     Dates: start: 20150713, end: 20150731
  8. RANITIDINE HYDROCHLORIDE. [Concomitant]
     Active Substance: RANITIDINE HYDROCHLORIDE
     Dates: start: 20150715, end: 20150731
  9. TRIPOTASSIUM DICITRATOBISMUTHATE [Concomitant]
     Dates: start: 20150715, end: 20150731
  10. TICAGRELOR [Suspect]
     Active Substance: TICAGRELOR
     Indication: CARDIOVASCULAR EVENT PROPHYLAXIS
     Route: 048
     Dates: start: 20150715, end: 20150817
  11. CIMETIDINE [Concomitant]
     Active Substance: CIMETIDINE
     Dates: start: 20150727, end: 20150731

REACTIONS (1)
  - Drug-induced liver injury [Recovered/Resolved]

NARRATIVE: CASE EVENT DATE: 20150731
